FAERS Safety Report 24741391 (Version 1)
Quarter: 2024Q4

REPORT INFORMATION
  Report Type: Spontaneous
  Country: US (occurrence: US)
  Receive Date: 20241217
  Receipt Date: 20241217
  Transmission Date: 20250115
  Serious: Yes (Other)
  Sender: ABBVIE
  Company Number: US-ABBVIE-6046967

PATIENT
  Age: 62 Year
  Sex: Female

DRUGS (1)
  1. RESTASIS [Suspect]
     Active Substance: CYCLOSPORINE
     Indication: Product used for unknown indication
     Dosage: 0_05% 60 X 0_4?ML
     Route: 047

REACTIONS (3)
  - Systemic lupus erythematosus [Unknown]
  - Liquid product physical issue [Not Recovered/Not Resolved]
  - Sjogren^s syndrome [Unknown]

NARRATIVE: CASE EVENT DATE: 20241212
